FAERS Safety Report 10458720 (Version 1)
Quarter: 2014Q3

REPORT INFORMATION
  Report Type: Spontaneous
  Country: IT (occurrence: None)
  Receive Date: 20140915
  Receipt Date: 20140915
  Transmission Date: 20150326
  Serious: Yes (Hospitalization, Other)
  Sender: FDA-Public Use
  Company Number: 2014SCAL000090

PATIENT
  Age: 3 Year
  Sex: Female

DRUGS (1)
  1. RIVASTIGMINE TARTARATE [Suspect]
     Active Substance: RIVASTIGMINE TARTRATE
     Indication: PRODUCT USED FOR UNKNOWN INDICATION
     Dosage: 1 OR 2 PILLS?

REACTIONS (12)
  - Cholinergic syndrome [None]
  - Diarrhoea [None]
  - Tracheobronchial dyskinesia [None]
  - Abdominal distension [None]
  - Ventricular extrasystoles [None]
  - Hyperhidrosis [None]
  - Toxicity to various agents [None]
  - Mental status changes [None]
  - Arrhythmia [None]
  - Hyporeflexia [None]
  - Extrasystoles [None]
  - Salivary hypersecretion [None]
